FAERS Safety Report 8940405 (Version 1)
Quarter: 2012Q4

REPORT INFORMATION
  Report Type: 
  Country: FR (occurrence: FR)
  Receive Date: 20121203
  Receipt Date: 20121203
  Transmission Date: 20130627
  Serious: Yes (Other)
  Sender: FDA-Public Use
  Company Number: FR-ASTRAZENECA-2012SE89584

PATIENT
  Sex: Female

DRUGS (3)
  1. XEROQUEL [Suspect]
     Indication: MANIA
     Route: 048
     Dates: start: 201210, end: 201210
  2. XEROQUEL [Suspect]
     Indication: MANIA
     Route: 048
     Dates: start: 201210, end: 20121123
  3. TEMESTA [Concomitant]
     Indication: ANXIETY
     Route: 048
     Dates: start: 201210, end: 201210

REACTIONS (1)
  - Drug-induced liver injury [Unknown]
